FAERS Safety Report 6166338-5 (Version None)
Quarter: 2009Q2

REPORT INFORMATION
  Report Type: 
  Country: None (occurrence: None)
  Receive Date: 20090424
  Receipt Date: 20090415
  Transmission Date: 20091009
  Serious: Yes (Other)
  Sender: FDA-Public Use
  Company Number: PL-BAYER-200918808GPV

PATIENT
  Sex: Female

DRUGS (1)
  1. YASMIN [Suspect]
     Indication: CONTRACEPTION
     Route: 048

REACTIONS (5)
  - AUTOIMMUNE DISORDER [None]
  - FEELING ABNORMAL [None]
  - NEUROLOGICAL SYMPTOM [None]
  - SJOGREN'S SYNDROME [None]
  - VITAMIN B12 DECREASED [None]
